FAERS Safety Report 12705361 (Version 3)
Quarter: 2016Q4

REPORT INFORMATION
  Report Type: Report from Study
  Country: US (occurrence: US)
  Receive Date: 20160901
  Receipt Date: 20161104
  Transmission Date: 20170207
  Serious: Yes (Other)
  Sender: FDA-Public Use
  Company Number: PHEH2016US021805

PATIENT
  Sex: Female

DRUGS (1)
  1. EXJADE [Suspect]
     Active Substance: DEFERASIROX
     Indication: MYELODYSPLASTIC SYNDROME
     Dosage: 500 MG, QD (DAILY)
     Route: 048
     Dates: start: 200704, end: 20160818

REACTIONS (3)
  - Off label use [Unknown]
  - Product use issue [Unknown]
  - Chronic kidney disease [Not Recovered/Not Resolved]
